FAERS Safety Report 19226335 (Version 1)
Quarter: 2021Q2

REPORT INFORMATION
  Report Type: Spontaneous
  Country: CA (occurrence: CA)
  Receive Date: 20210506
  Receipt Date: 20210506
  Transmission Date: 20210717
  Serious: Yes (Other)
  Sender: FDA-Public Use
  Company Number: CA-PFIZER INC-2021244775

PATIENT
  Age: 75 Year
  Sex: Female

DRUGS (2)
  1. XELJANZ XR [Suspect]
     Active Substance: TOFACITINIB CITRATE
     Indication: RHEUMATOID ARTHRITIS
     Dosage: 11 MG, 1X/DAY
     Route: 065
     Dates: start: 20210204
  2. SALAZOPYRIN [Concomitant]
     Active Substance: SULFASALAZINE
     Dosage: 1 G, 2X/DAY
     Route: 065
     Dates: start: 2006

REACTIONS (5)
  - Skin discolouration [Recovering/Resolving]
  - Renal disorder [Recovered/Resolved]
  - Rash [Not Recovered/Not Resolved]
  - Therapeutic product effect incomplete [Unknown]
  - Psoriasis [Unknown]
